FAERS Safety Report 8191008-1 (Version None)
Quarter: 2012Q1

REPORT INFORMATION
  Report Type: 
  Country: None (occurrence: None)
  Receive Date: 20120221
  Receipt Date: 20111121
  Transmission Date: 20120608
  Serious: No
  Sender: FDA-Public Use
  Company Number: 1000025653

PATIENT
  Age: 50 Year
  Sex: Female

DRUGS (7)
  1. TRILPIX (CHOLINE FENOFIBRATE) (CHOLINE FENOFIBRATE) [Concomitant]
  2. VIIBRYD [Suspect]
     Indication: DEPRESSION
     Dosage: 10 MG (10 MG, 1 IN 1D), ORAL; 20 MG (20 MG, 1 IN 1 D),ORAL; 40 MG (40 MG, 1 IN 1 D), ORAL
     Route: 048
     Dates: start: 20111001, end: 20111001
  3. VIIBRYD [Suspect]
     Indication: DEPRESSION
     Dosage: 10 MG (10 MG, 1 IN 1D), ORAL; 20 MG (20 MG, 1 IN 1 D),ORAL; 40 MG (40 MG, 1 IN 1 D), ORAL
     Route: 048
     Dates: start: 20111001, end: 20110101
  4. VIIBRYD [Suspect]
     Indication: DEPRESSION
     Dosage: 10 MG (10 MG, 1 IN 1D), ORAL; 20 MG (20 MG, 1 IN 1 D),ORAL; 40 MG (40 MG, 1 IN 1 D), ORAL
     Route: 048
     Dates: start: 20110101
  5. LIPITOR (ATROVASATIN CALCIUM) (ATROVASTATIN CALCIUM) [Concomitant]
  6. LOSARTAN (LOSARTAN) (LOSARTAN) [Concomitant]
  7. VICTOZA (LIRAGLUTIDE) (LIRAGULTIDE) [Concomitant]

REACTIONS (2)
  - WEIGHT INCREASED [None]
  - BLOOD GLUCOSE INCREASED [None]
